FAERS Safety Report 21998572 (Version 1)
Quarter: 2023Q1

REPORT INFORMATION
  Report Type: Spontaneous
  Country: RU (occurrence: RU)
  Receive Date: 20230216
  Receipt Date: 20230216
  Transmission Date: 20230418
  Serious: Yes (Hospitalization)
  Sender: FDA-Public Use
  Company Number: RU-STRIDES ARCOLAB LIMITED-2023SP002332

PATIENT
  Age: 61 Year
  Sex: Male

DRUGS (11)
  1. DEXAMETHASONE [Suspect]
     Active Substance: DEXAMETHASONE
     Indication: COVID-19
     Dosage: 8 MILLIGRAM, PER DAY
     Route: 048
  2. DEXAMETHASONE [Suspect]
     Active Substance: DEXAMETHASONE
     Dosage: 8 MILLIGRAM, PER DAY
     Route: 042
  3. DEXAMETHASONE [Suspect]
     Active Substance: DEXAMETHASONE
     Dosage: 24 MILLIGRAM, BID
     Route: 048
  4. DEXAMETHASONE [Suspect]
     Active Substance: DEXAMETHASONE
     Dosage: 24 MILLIGRAM, BID
     Route: 042
  5. FAVIPIRAVIR [Suspect]
     Active Substance: FAVIPIRAVIR
     Indication: COVID-19
     Dosage: 800 MILLIGRAM, BID
     Route: 042
  6. AMBROXOL [Suspect]
     Active Substance: AMBROXOL
     Indication: COVID-19
     Dosage: 30 MILLIGRAM, TID
     Route: 048
  7. LEVILIMAB [Suspect]
     Active Substance: LEVILIMAB
     Indication: Cytokine storm
     Dosage: 324 MILLIGRAM, SINGLE
     Route: 042
  8. NADROPARIN [Concomitant]
     Active Substance: NADROPARIN
     Indication: Symptomatic treatment
     Dosage: 5700 ANTI-XA IU, BID
     Route: 058
  9. LEVOFLOXACIN [Concomitant]
     Active Substance: LEVOFLOXACIN
     Indication: Symptomatic treatment
     Dosage: UNK
     Route: 065
  10. AMOXICILLIN AND CLAVULANATE POTASSIUM [Concomitant]
     Active Substance: AMOXICILLIN\CLAVULANATE POTASSIUM
     Indication: Symptomatic treatment
     Dosage: UNK
     Route: 065
  11. RIVAROXABAN [Concomitant]
     Active Substance: RIVAROXABAN
     Indication: Symptomatic treatment
     Dosage: UNK
     Route: 065

REACTIONS (7)
  - Hypoalbuminaemia [Recovered/Resolved]
  - Anaemia [Recovered/Resolved]
  - Pneumonia klebsiella [Recovered/Resolved]
  - Pneumonia acinetobacter [Recovered/Resolved]
  - Pneumonia [Recovered/Resolved]
  - Lung abscess [Recovered/Resolved]
  - Drug ineffective for unapproved indication [Unknown]
